FAERS Safety Report 18224998 (Version 2)
Quarter: 2020Q4

REPORT INFORMATION
  Report Type: Report from Study
  Country: None (occurrence: US)
  Receive Date: 20200902
  Receipt Date: 20201019
  Transmission Date: 20210113
  Serious: Yes (Other)
  Sender: FDA-Public Use
  Company Number: US-ABBVIE-20K-163-3541980-00

PATIENT
  Age: 45 Year
  Sex: Female

DRUGS (2)
  1. HUMIRA [Suspect]
     Active Substance: ADALIMUMAB
     Dosage: CITRATE FREE
     Route: 058
  2. HUMIRA [Suspect]
     Active Substance: ADALIMUMAB
     Indication: HIDRADENITIS
     Route: 058

REACTIONS (23)
  - Ear infection [Not Recovered/Not Resolved]
  - Gastrooesophageal reflux disease [Not Recovered/Not Resolved]
  - Dry mouth [Unknown]
  - Hidradenitis [Not Recovered/Not Resolved]
  - Pain [Unknown]
  - Balance disorder [Unknown]
  - Tympanic membrane perforation [Unknown]
  - Ear tube insertion [Not Recovered/Not Resolved]
  - Venous injury [Unknown]
  - Pharyngitis [Not Recovered/Not Resolved]
  - Hyperhidrosis [Unknown]
  - Allergic cough [Not Recovered/Not Resolved]
  - Injection site bruising [Unknown]
  - Hypersensitivity [Unknown]
  - Throat irritation [Unknown]
  - Dyspnoea [Unknown]
  - Loss of consciousness [Unknown]
  - Injection site bruising [Recovered/Resolved]
  - Oral candidiasis [Not Recovered/Not Resolved]
  - Postoperative adhesion [Not Recovered/Not Resolved]
  - Upper-airway cough syndrome [Unknown]
  - Dysgeusia [Unknown]
  - Diabetes mellitus [Unknown]

NARRATIVE: CASE EVENT DATE: 20200526
